FAERS Safety Report 6530295-X (Version None)
Quarter: 2010Q1

REPORT INFORMATION
  Report Type: 
  Country: None (occurrence: None)
  Receive Date: 20100107
  Receipt Date: 20091228
  Transmission Date: 20100710
  Serious: Yes (Other)
  Sender: FDA-Public Use
  Company Number: US-CELGENEUS-163-20785-09121025

PATIENT
  Sex: Female

DRUGS (4)
  1. THALOMID [Suspect]
     Indication: MULTIPLE MYELOMA
     Route: 048
     Dates: start: 20090301, end: 20091001
  2. THALOMID [Suspect]
     Route: 048
     Dates: start: 20080401
  3. THALOMID [Suspect]
     Route: 048
     Dates: start: 20080801
  4. THALOMID [Suspect]
     Route: 048
     Dates: start: 20070801

REACTIONS (2)
  - HYPOAESTHESIA [None]
  - MUSCLE SPASMS [None]
